FAERS Safety Report 23972854 (Version 1)
Quarter: 2024Q2

REPORT INFORMATION
  Report Type: Spontaneous
  Country: US (occurrence: US)
  Receive Date: 20240613
  Receipt Date: 20240613
  Transmission Date: 20240717
  Serious: No
  Sender: FDA-Public Use
  Company Number: US-BEH-2024173113

PATIENT
  Sex: Female
  Weight: 68 kg

DRUGS (1)
  1. HIZENTRA [Suspect]
     Active Substance: HUMAN IMMUNOGLOBULIN G
     Dosage: 13 G, QW
     Route: 065

REACTIONS (2)
  - Injection site erythema [Recovering/Resolving]
  - Fatigue [Unknown]
